FAERS Safety Report 5315748-4 (Version None)
Quarter: 2007Q2

REPORT INFORMATION
  Report Type: 
  Country: None (occurrence: None)
  Receive Date: 20070503
  Receipt Date: 20070503
  Transmission Date: 20071010
  Serious: Yes (Other)
  Sender: FDA-Public Use
  Company Number: US-GLAXOSMITHKLINE-A0649663A

PATIENT
  Sex: Male

DRUGS (1)
  1. TUMS E-X TABLETS, TROPICAL FRUIT [Suspect]
     Indication: DRUG USE FOR UNKNOWN INDICATION
     Route: 048

REACTIONS (3)
  - DIARRHOEA [None]
  - INTENTIONAL DRUG MISUSE [None]
  - URINARY INCONTINENCE [None]
